FAERS Safety Report 4906483-2 (Version None)
Quarter: 2006Q1

REPORT INFORMATION
  Report Type: 
  Country: None (occurrence: None)
  Receive Date: 20060206
  Receipt Date: 20060202
  Transmission Date: 20060701
  Serious: Yes (Hospitalization)
  Sender: FDA-Public Use
  Company Number: 200610308GDS

PATIENT
  Age: 80 Year
  Sex: Female

DRUGS (12)
  1. ASPIRIN [Suspect]
     Dosage: 100 MG, TOTAL DAILY, ORAL
     Route: 048
  2. AMARYL [Suspect]
     Dosage: 2 MG, TOTAL DAILY, ORAL
     Route: 048
     Dates: end: 20050924
  3. GLUCOPHAGE [Suspect]
     Dosage: 850 MG, TID, ORAL
     Route: 048
     Dates: end: 20050924
  4. LEVOFLOXACIN [Suspect]
     Indication: PNEUMONITIS
     Dosage: 500 MG, TOTAL DAILY, ORAL
     Route: 048
     Dates: start: 20050916, end: 20050924
  5. CLOMETHIAZOLE [Concomitant]
  6. TOREM /GRF/ [Concomitant]
  7. DIGOXIN [Concomitant]
  8. TOLVON [Concomitant]
  9. FENOFETEROL W/IPRATROPIUM [Concomitant]
  10. PULMICORT [Concomitant]
  11. COAPROVEL [Concomitant]
  12. BERODUAL [Concomitant]

REACTIONS (7)
  - HYPOGLYCAEMIC COMA [None]
  - MYDRIASIS [None]
  - PUPILS UNEQUAL [None]
  - RENAL FAILURE [None]
  - SOMNOLENCE [None]
  - UNRESPONSIVE TO PAIN STIMULI [None]
  - UNRESPONSIVE TO VERBAL STIMULI [None]
